FAERS Safety Report 23466581 (Version 1)
Quarter: 2024Q1

REPORT INFORMATION
  Report Type: Spontaneous
  Country: US (occurrence: US)
  Receive Date: 20240201
  Receipt Date: 20240201
  Transmission Date: 20240410
  Serious: No
  Sender: FDA-Public Use
  Company Number: US-GSK-US2024AMR011178

PATIENT
  Age: 8 Year
  Sex: Male

DRUGS (1)
  1. FLOVENT [Suspect]
     Active Substance: FLUTICASONE PROPIONATE
     Indication: Product used for unknown indication
     Dosage: UNK,3X FLOVENT^S RECOMMENDED DOSAGE

REACTIONS (3)
  - Feeling abnormal [Unknown]
  - Product prescribing error [Unknown]
  - Incorrect dose administered [Unknown]
